FAERS Safety Report 8913422 (Version 3)
Quarter: 2012Q4

REPORT INFORMATION
  Report Type: 
  Country: GB (occurrence: GB)
  Receive Date: 20121116
  Receipt Date: 20121219
  Transmission Date: 20130627
  Serious: Yes (Other)
  Sender: FDA-Public Use
  Company Number: GB-WATSON-2012-19356

PATIENT
  Age: 75 Year
  Sex: Female

DRUGS (2)
  1. TERBINAFINE HYDROCHLORIDE [Suspect]
     Indication: RASH
     Dosage: 250 mg, unknown
     Route: 048
     Dates: start: 1995
  2. TERBINAFINE HYDROCHLORIDE [Suspect]
     Indication: RASH
     Dosage: Formulation: Cream
     Route: 061

REACTIONS (12)
  - Anxiety [Unknown]
  - Insomnia [Unknown]
  - Emotional distress [Unknown]
  - Tinea infection [Unknown]
  - Inflammation [Unknown]
  - Pruritus [Unknown]
  - Hyperhidrosis [Unknown]
  - Candidiasis [Unknown]
  - Discomfort [Unknown]
  - Suicidal ideation [Unknown]
  - Rash [Unknown]
  - Hypersensitivity [Unknown]
